FAERS Safety Report 4331152-X (Version None)
Quarter: 2004Q2

REPORT INFORMATION
  Report Type: 
  Country: None (occurrence: None)
  Receive Date: 20040405
  Receipt Date: 20031120
  Transmission Date: 20050107
  Serious: Yes (Hospitalization, Other)
  Sender: FDA-Public Use
  Company Number: PHNU2003DE04222

PATIENT
  Age: 48 Year
  Sex: Male

DRUGS (7)
  1. LAMISIL [Suspect]
     Indication: ONYCHOMYCOSIS
     Dosage: 250 MG, QD
     Route: 048
     Dates: start: 20030321, end: 20030323
  2. AMIOXID-NEURAXPHARM [Suspect]
     Route: 048
     Dates: end: 20031101
  3. AMIOXID-NEURAXPHARM [Suspect]
     Dosage: 30MG/DAY
     Route: 048
     Dates: start: 20031101, end: 20031101
  4. AMIOXID-NEURAXPHARM [Suspect]
     Dosage: DOSAGE REDUCED
     Route: 065
     Dates: start: 20031101
  5. BISOPROLOL [Suspect]
     Route: 065
     Dates: end: 20031101
  6. BISOPROLOL [Suspect]
     Dosage: DOSAGE INCREASED
     Route: 065
     Dates: start: 20031101, end: 20031101
  7. BISOPROLOL [Suspect]
     Dosage: DOSAGE REDUCED
     Route: 065
     Dates: start: 20031101

REACTIONS (3)
  - ARRHYTHMIA [None]
  - HYPERHIDROSIS [None]
  - TACHYCARDIA [None]
